FAERS Safety Report 7289244-1 (Version None)
Quarter: 2011Q1

REPORT INFORMATION
  Report Type: 
  Country: None (occurrence: None)
  Receive Date: 20110211
  Receipt Date: 20110208
  Transmission Date: 20110831
  Serious: Yes (Disabling)
  Sender: FDA-Public Use
  Company Number: JP-PFIZER INC-2011029486

PATIENT
  Age: 54 Year
  Sex: Female

DRUGS (4)
  1. RINGEREAZE [Concomitant]
     Indication: CERVICOBRACHIAL SYNDROME
     Dosage: UNK
     Route: 048
     Dates: start: 20031105
  2. DIOVAN [Concomitant]
     Indication: HYPERTENSION
     Dosage: 80 MG, 1X/DAY
     Route: 048
     Dates: start: 20030423
  3. AMLODIPINE [Concomitant]
     Indication: HYPERTENSION
     Dosage: 2.5 MG, 1X/DAY
     Route: 048
     Dates: start: 20031028
  4. CYTOTEC [Suspect]
     Indication: CERVICOBRACHIAL SYNDROME
     Dosage: 100 UG, 1X/DAY
     Route: 048
     Dates: start: 20080109, end: 20101207

REACTIONS (3)
  - TONGUE PARALYSIS [None]
  - TONGUE ATROPHY [None]
  - DYSPHONIA [None]
